FAERS Safety Report 23866571 (Version 1)
Quarter: 2024Q2

REPORT INFORMATION
  Report Type: Report from Study
  Country: CN (occurrence: CN)
  Receive Date: 20240517
  Receipt Date: 20240517
  Transmission Date: 20240716
  Serious: Yes (Other)
  Sender: FDA-Public Use
  Company Number: CN-JNJFOC-20240517088

PATIENT
  Sex: Male

DRUGS (5)
  1. ABIRATERONE ACETATE [Suspect]
     Active Substance: ABIRATERONE ACETATE
     Indication: Hormone-dependent prostate cancer
     Route: 048
  2. APALUTAMIDE [Suspect]
     Active Substance: APALUTAMIDE
     Indication: Hormone-dependent prostate cancer
     Route: 048
  3. ENZALUTAMIDE [Suspect]
     Active Substance: ENZALUTAMIDE
     Indication: Hormone-dependent prostate cancer
     Route: 065
  4. BICALUTAMIDE [Suspect]
     Active Substance: BICALUTAMIDE
     Indication: Hormone-dependent prostate cancer
     Route: 065
  5. PREDNISONE [Suspect]
     Active Substance: PREDNISONE
     Indication: Hormone-dependent prostate cancer
     Route: 065

REACTIONS (33)
  - Hypothyroidism [Unknown]
  - Haematochezia [Unknown]
  - Urinary retention [Unknown]
  - Hypokalaemia [Unknown]
  - Decreased appetite [Unknown]
  - Bone pain [Unknown]
  - Gynaecomastia [Unknown]
  - Hypersomnia [Unknown]
  - Rash [Unknown]
  - Diarrhoea [Unknown]
  - Fatigue [Unknown]
  - Arthralgia [Unknown]
  - Fall [Unknown]
  - Blood alkaline phosphatase increased [Unknown]
  - Dyspnoea [Unknown]
  - Anaemia [Unknown]
  - Weight decreased [Unknown]
  - Weight increased [Unknown]
  - Hypertension [Unknown]
  - Haematuria [Unknown]
  - Fracture [Unknown]
  - Pollakiuria [Unknown]
  - Hyperglycinaemia [Unknown]
  - Oedema peripheral [Unknown]
  - Hot flush [Unknown]
  - Hyperhidrosis [Unknown]
  - Constipation [Unknown]
  - Vomiting [Unknown]
  - Nausea [Unknown]
  - Back pain [Unknown]
  - Urinary tract infection [Unknown]
  - Tachycardia [Unknown]
  - Respiratory tract infection [Unknown]
